FAERS Safety Report 4868623-3 (Version None)
Quarter: 2005Q4

REPORT INFORMATION
  Report Type: 
  Country: None (occurrence: None)
  Receive Date: 20051223
  Receipt Date: 20051212
  Transmission Date: 20060501
  Serious: Yes (Hospitalization)
  Sender: FDA-Public Use
  Company Number: 2000018007FR

PATIENT
  Age: 64 Year
  Sex: Male

DRUGS (6)
  1. MEDROL [Suspect]
     Indication: NERVOUS SYSTEM NEOPLASM
     Dosage: 64 MG, ORAL
     Route: 048
     Dates: end: 20000208
  2. OMEPRAZOLE [Suspect]
     Indication: NERVOUS SYSTEM NEOPLASM
     Dosage: 20 MG ORAL
     Route: 048
     Dates: end: 20000206
  3. NEURONTIN [Concomitant]
  4. NITRIDERM TTS (GLYCERYL TRINITRATE) [Concomitant]
  5. BISOPROLOL FUMARATE [Concomitant]
  6. LEXOMIL (BROMAZEPAM) [Concomitant]

REACTIONS (3)
  - CONDITION AGGRAVATED [None]
  - CONFUSIONAL STATE [None]
  - DISORIENTATION [None]
